FAERS Safety Report 14978296 (Version 1)
Quarter: 2018Q2

REPORT INFORMATION
  Report Type: Spontaneous
  Country: NL (occurrence: NL)
  Receive Date: 20180606
  Receipt Date: 20180606
  Transmission Date: 20180711
  Serious: Yes (Life-Threatening, Hospitalization, Other)
  Sender: FDA-Public Use
  Company Number: NL-WEST-WARD PHARMACEUTICALS CORP.-NL-H14001-18-04560

PATIENT
  Age: 86 Year
  Sex: Female
  Weight: 86 kg

DRUGS (9)
  1. ALLOPURINOL PCH TABLET 100MG TABLET [Suspect]
     Active Substance: ALLOPURINOL
     Indication: GOUT
     Dosage: 2DD1
     Route: 065
     Dates: start: 20180323
  2. AUGMENTIN [Suspect]
     Active Substance: AMOXICILLIN\CLAVULANATE POTASSIUM
     Indication: PRODUCT USED FOR UNKNOWN INDICATION
     Dosage: 1 GIFT
     Route: 065
  3. BUMETANIDE. [Concomitant]
     Active Substance: BUMETANIDE
     Indication: PRODUCT USED FOR UNKNOWN INDICATION
     Dosage: 1 DD 1
     Route: 065
  4. PANTOPRAZOL 40MG [Concomitant]
     Active Substance: PANTOPRAZOLE SODIUM
     Indication: PRODUCT USED FOR UNKNOWN INDICATION
     Dosage: 1 DD 1
     Route: 065
  5. CEFUROXIM IV [Suspect]
     Active Substance: CEFUROXIME
     Indication: PRODUCT USED FOR UNKNOWN INDICATION
     Dosage: 3 GIFTEN ; IN TOTAL
     Route: 042
  6. ACENOCUMAROL 1MG [Concomitant]
     Indication: PRODUCT USED FOR UNKNOWN INDICATION
     Dosage: VV ()
     Route: 065
  7. EUTHYROX TABLET 150MCG [Concomitant]
     Indication: PRODUCT USED FOR UNKNOWN INDICATION
     Dosage: 1 DD 1
     Route: 065
  8. CALCI CHEW 500/800 [Concomitant]
     Indication: PRODUCT USED FOR UNKNOWN INDICATION
     Dosage: 1 DD 1
     Route: 065
  9. AMIODARON 200MG [Concomitant]
     Indication: PRODUCT USED FOR UNKNOWN INDICATION
     Dosage: 1 DD 1
     Route: 065

REACTIONS (5)
  - Renal impairment [Unknown]
  - Rash [Unknown]
  - Face oedema [Unknown]
  - Hyperbilirubinaemia [Unknown]
  - Hepatic function abnormal [Unknown]

NARRATIVE: CASE EVENT DATE: 20180502
